FAERS Safety Report 12920904 (Version 1)
Quarter: 2016Q4

REPORT INFORMATION
  Report Type: Spontaneous
  Country: US (occurrence: US)
  Receive Date: 20161108
  Receipt Date: 20161108
  Transmission Date: 20170207
  Serious: No
  Sender: FDA-Public Use
  Company Number: None

PATIENT
  Age: 66 Year
  Sex: Female
  Weight: 95.26 kg

DRUGS (8)
  1. PHENTERMINE. [Suspect]
     Active Substance: PHENTERMINE
  2. LISINOPRIL. [Suspect]
     Active Substance: LISINOPRIL
     Indication: BLOOD PRESSURE MEASUREMENT
     Route: 048
     Dates: start: 20160118, end: 201607
  3. SIMVASTATIN. [Concomitant]
     Active Substance: SIMVASTATIN
  4. BENZTROPINE [Suspect]
     Active Substance: BENZTROPINE
  5. METFORMIN [Concomitant]
     Active Substance: METFORMIN HYDROCHLORIDE
  6. NITROSTAT [Concomitant]
     Active Substance: NITROGLYCERIN
  7. AMLODIPINE BESYLATE. [Concomitant]
     Active Substance: AMLODIPINE BESYLATE
  8. ASPIRIN. [Concomitant]
     Active Substance: ASPIRIN

REACTIONS (5)
  - Headache [None]
  - Cough [None]
  - Chest pain [None]
  - Breast haemorrhage [None]
  - Breast discharge [None]
